FAERS Safety Report 24685124 (Version 6)
Quarter: 2025Q1

REPORT INFORMATION
  Report Type: Spontaneous
  Country: KR (occurrence: KR)
  Receive Date: 20241202
  Receipt Date: 20250320
  Transmission Date: 20250408
  Serious: Yes (Hospitalization, Other)
  Sender: ACCORD
  Company Number: KR-Accord-457999

PATIENT
  Age: 69 Year
  Sex: Male

DRUGS (28)
  1. FLUOROURACIL [Suspect]
     Active Substance: FLUOROURACIL
     Indication: Colorectal cancer
     Route: 042
     Dates: start: 20240401, end: 20240422
  2. OXALIPLATIN [Suspect]
     Active Substance: OXALIPLATIN
     Indication: Colorectal cancer
     Route: 042
     Dates: start: 20240401, end: 20240909
  3. BEVACIZUMAB [Suspect]
     Active Substance: BEVACIZUMAB
     Indication: Colorectal cancer
     Route: 042
     Dates: start: 20240401, end: 20241104
  4. LEUCOVORIN [Suspect]
     Active Substance: LEUCOVORIN\LEUCOVORIN CALCIUM
     Indication: Colorectal cancer
     Route: 042
     Dates: start: 20240401, end: 20241104
  5. DEXAMETHASONE [Concomitant]
     Active Substance: DEXAMETHASONE
     Dates: start: 20240401, end: 20241104
  6. LOPERAMIDE [Concomitant]
     Active Substance: LOPERAMIDE
     Dates: start: 20240401
  7. PALONOSETRON HYDROCHLORIDE [Concomitant]
     Active Substance: PALONOSETRON HYDROCHLORIDE
     Dates: start: 20240401, end: 20241104
  8. GLICLAZIDE [Concomitant]
     Active Substance: GLICLAZIDE
     Dates: start: 20240409, end: 202411
  9. METFORMIN [Concomitant]
     Active Substance: METFORMIN HYDROCHLORIDE
     Dates: start: 20240413, end: 202411
  10. DARBEPOETIN ALFA [Concomitant]
     Active Substance: DARBEPOETIN ALFA
     Dates: start: 20241028, end: 20241028
  11. FILGRASTIM [Concomitant]
     Active Substance: FILGRASTIM
     Dates: start: 20241028, end: 20241028
  12. MORPHINE [Concomitant]
     Active Substance: MORPHINE
     Dates: start: 20241107, end: 20241107
  13. PREDNICARBATE [Concomitant]
     Active Substance: PREDNICARBATE
     Dates: start: 20241014
  14. CEFPODOXIME PROXETIL [Concomitant]
     Active Substance: CEFPODOXIME PROXETIL
     Dates: start: 20241108, end: 20241112
  15. TANTUM [Concomitant]
     Active Substance: BENZYDAMINE HYDROCHLORIDE
     Dates: start: 20240722
  16. MONTMORILLONITE [Concomitant]
     Active Substance: MONTMORILLONITE
     Dates: start: 20240413
  17. PROBIOTICS NOS [Concomitant]
     Active Substance: PROBIOTICS NOS
     Dates: start: 20241107
  18. LIDOCAINE [Concomitant]
     Active Substance: LIDOCAINE
     Dates: start: 20240722
  19. MAGNESIUM OXIDE [Concomitant]
     Active Substance: MAGNESIUM OXIDE
     Dates: start: 20241107
  20. METOCLOPRAMIDE HYDROCHLORIDE [Concomitant]
     Active Substance: METOCLOPRAMIDE HYDROCHLORIDE
     Dates: start: 202308
  21. PARACETAMOL W/TRAMADOL HYDROCHLORID [Concomitant]
     Dates: start: 202307
  22. HERBALS\PLANTAGO OVATA LEAF [Concomitant]
     Active Substance: HERBALS\PLANTAGO OVATA LEAF
     Dates: start: 20241107
  23. DAPAGLIFLOZIN [Concomitant]
     Active Substance: DAPAGLIFLOZIN
     Dates: start: 20240410, end: 202411
  24. ACETAMINOPHEN [Concomitant]
     Active Substance: ACETAMINOPHEN
     Dates: start: 20241107, end: 20241107
  25. FLUOROURACIL [Suspect]
     Active Substance: FLUOROURACIL
     Indication: Colorectal cancer
     Route: 042
     Dates: start: 20240422, end: 20240507
  26. FLUOROURACIL [Suspect]
     Active Substance: FLUOROURACIL
     Indication: Colorectal cancer
     Route: 042
     Dates: start: 20240507, end: 20241104
  27. OXALIPLATIN [Suspect]
     Active Substance: OXALIPLATIN
     Indication: Colorectal cancer
     Route: 042
     Dates: start: 20240909, end: 20241104
  28. OXALIPLATIN [Suspect]
     Active Substance: OXALIPLATIN
     Indication: Colorectal cancer
     Route: 042
     Dates: start: 20241104, end: 20241104

REACTIONS (3)
  - Acute kidney injury [Recovered/Resolved]
  - Peripheral sensory neuropathy [Unknown]
  - Anaemia [Unknown]

NARRATIVE: CASE EVENT DATE: 20241016
